FAERS Safety Report 4778381-9 (Version None)
Quarter: 2005Q3

REPORT INFORMATION
  Report Type: 
  Country: None (occurrence: None)
  Receive Date: 20050926
  Receipt Date: 20050921
  Transmission Date: 20060218
  Serious: Yes (Death)
  Sender: FDA-Public Use
  Company Number: US-GLAXOSMITHKLINE-A0575529A

PATIENT
  Age: 37 Year
  Sex: Male

DRUGS (3)
  1. WELLBUTRIN [Suspect]
     Indication: DEPRESSION
     Route: 048
  2. METHADONE HCL [Suspect]
  3. OXYCODONE HCL [Suspect]

REACTIONS (5)
  - ARTERIAL OCCLUSIVE DISEASE [None]
  - CARDIOMEGALY [None]
  - DEATH [None]
  - MYOCLONUS [None]
  - OVERDOSE [None]
